FAERS Safety Report 6564372-4 (Version None)
Quarter: 2010Q1

REPORT INFORMATION
  Report Type: 
  Country: None (occurrence: None)
  Receive Date: 20100201
  Receipt Date: 20100120
  Transmission Date: 20100710
  Serious: Yes (Other)
  Sender: FDA-Public Use
  Company Number: US-JNJFOC-20100110100

PATIENT
  Sex: Female

DRUGS (1)
  1. TYELNOL WARMING COLD MULTI-SYMPTOM NIGHTTIME HONEY LEMON [Suspect]
     Indication: NASOPHARYNGITIS

REACTIONS (1)
  - HYPERSENSITIVITY [None]
